FAERS Safety Report 23988404 (Version 1)
Quarter: 2024Q2

REPORT INFORMATION
  Report Type: Report from Study
  Country: US (occurrence: US)
  Receive Date: 20240619
  Receipt Date: 20240619
  Transmission Date: 20240716
  Serious: Yes (Hospitalization)
  Sender: FDA-Public Use
  Company Number: US-JNJFOC-20240633075

PATIENT
  Age: 36 Year
  Sex: Female

DRUGS (4)
  1. SPRAVATO [Suspect]
     Active Substance: ESKETAMINE
     Indication: Depression
     Dosage: ^^56 MG, 1 TOTAL DOSE^^
     Dates: start: 20220712, end: 20220712
  2. SPRAVATO [Suspect]
     Active Substance: ESKETAMINE
     Dosage: ^^84 MG, 21 TOTAL DOSES^^
     Dates: start: 20220715, end: 20230203
  3. SPRAVATO [Suspect]
     Active Substance: ESKETAMINE
     Dosage: ^^56 MG, 4 TOTAL DOSES^^
     Dates: start: 20230210, end: 20230310
  4. SPRAVATO [Suspect]
     Active Substance: ESKETAMINE
     Dosage: ^^84 MG, 37 TOTAL DOSES^^
     Dates: start: 20230317, end: 20240402

REACTIONS (1)
  - Abdominal operation [Recovering/Resolving]

NARRATIVE: CASE EVENT DATE: 20240501
